FAERS Safety Report 9180889 (Version 4)
Quarter: 2013Q4

REPORT INFORMATION
  Report Type: Report from Study
  Country: CA (occurrence: CA)
  Receive Date: 20130322
  Receipt Date: 20131009
  Transmission Date: 20140711
  Serious: Yes (Hospitalization, Other)
  Sender: FDA-Public Use
  Company Number: CA-JNJFOC-20130307496

PATIENT
  Age: 29 Year
  Sex: Female
  Weight: 96.9 kg

DRUGS (6)
  1. REMICADE [Suspect]
     Indication: COLITIS ULCERATIVE
     Dosage: 3 INFUSIONS
     Route: 042
     Dates: start: 20130521
  2. REMICADE [Suspect]
     Indication: COLITIS ULCERATIVE
     Dosage: 3 INFUSIONS
     Route: 042
     Dates: start: 20130118
  3. REMICADE [Suspect]
     Indication: COLITIS ULCERATIVE
     Dosage: 3 INFUSIONS
     Route: 042
     Dates: start: 20121219
  4. MEZAVANT [Concomitant]
     Route: 065
  5. IRON SUPPLEMENT [Concomitant]
     Route: 065
  6. PREDNISONE [Concomitant]
     Route: 048
     Dates: end: 20130623

REACTIONS (2)
  - Gallbladder disorder [Recovering/Resolving]
  - Colitis ulcerative [Unknown]
